FAERS Safety Report 19575259 (Version 1)
Quarter: 2021Q3

REPORT INFORMATION
  Report Type: Spontaneous
  Country: US (occurrence: US)
  Receive Date: 20210716
  Receipt Date: 20210716
  Transmission Date: 20211014
  Serious: Yes (Other)
  Sender: FDA-Public Use
  Company Number: None

PATIENT
  Age: 17 Year
  Sex: Female
  Weight: 108.45 kg

DRUGS (2)
  1. SSD [Suspect]
     Active Substance: SILVER SULFADIAZINE
     Indication: BURNS SECOND DEGREE
     Dosage: ?          QUANTITY:2 APPLY CREAM TWICE;?
     Route: 061
     Dates: start: 20210709, end: 20210713
  2. IBUPROFEN. [Concomitant]
     Active Substance: IBUPROFEN

REACTIONS (5)
  - Memory impairment [None]
  - Confusional state [None]
  - Speech disorder [None]
  - Vomiting [None]
  - Eye pruritus [None]

NARRATIVE: CASE EVENT DATE: 20210712
